FAERS Safety Report 4308478-9 (Version None)
Quarter: 2004Q1

REPORT INFORMATION
  Report Type: 
  Country: None (occurrence: None)
  Receive Date: 20040301
  Receipt Date: 20040223
  Transmission Date: 20041129
  Serious: Yes (Death)
  Sender: FDA-Public Use
  Company Number: GB-ROCHE-359805

PATIENT
  Age: 18 Year
  Sex: Male

DRUGS (3)
  1. ROACCUTANE [Suspect]
     Indication: ACNE CYSTIC
     Route: 048
     Dates: start: 20000615
  2. ROACCUTANE [Suspect]
     Route: 048
  3. ROACCUTANE [Suspect]
     Route: 048
     Dates: end: 20020615

REACTIONS (1)
  - COMPLETED SUICIDE [None]
